FAERS Safety Report 15732141 (Version 1)
Quarter: 2018Q4

REPORT INFORMATION
  Report Type: Spontaneous
  Country: CL (occurrence: CL)
  Receive Date: 20181217
  Receipt Date: 20181217
  Transmission Date: 20190205
  Serious: Yes (Other)
  Sender: FDA-Public Use
  Company Number: CL-ALLERGAN-1857706US

PATIENT

DRUGS (10)
  1. DEXAMETHASONE. [Concomitant]
     Active Substance: DEXAMETHASONE
     Indication: EXPOSURE DURING PREGNANCY
     Dosage: UNK
     Dates: start: 201608
  2. URSODEOXYCHOLIC ACID UNK [Suspect]
     Active Substance: URSODIOL
     Indication: EXPOSURE DURING PREGNANCY
     Dosage: UNK
     Route: 064
     Dates: start: 201608, end: 201608
  3. CEFTRIAXONE. [Concomitant]
     Active Substance: CEFTRIAXONE
     Indication: EXPOSURE DURING PREGNANCY
     Dosage: UNK
     Route: 064
     Dates: start: 201608
  4. AMPICILLIN [Concomitant]
     Active Substance: AMPICILLIN
     Indication: EXPOSURE DURING PREGNANCY
     Dosage: UNK
     Route: 064
     Dates: start: 201608
  5. OPIOIDS [Concomitant]
     Active Substance: UNSPECIFIED INGREDIENT
     Indication: EXPOSURE DURING PREGNANCY
     Dosage: UNK
     Route: 064
     Dates: start: 2016
  6. AZATHIOPRINE. [Concomitant]
     Active Substance: AZATHIOPRINE
     Indication: EXPOSURE DURING PREGNANCY
     Dosage: UNK
     Dates: start: 201608
  7. ACETAMINOPHEN. [Concomitant]
     Active Substance: ACETAMINOPHEN
     Indication: EXPOSURE DURING PREGNANCY
     Dosage: UNK
     Route: 064
     Dates: start: 2016
  8. NIVOLUMAB [Concomitant]
     Active Substance: NIVOLUMAB
     Indication: EXPOSURE DURING PREGNANCY
     Dosage: UNK
     Route: 064
     Dates: start: 201605, end: 201608
  9. METHYLPREDNISOLONE. [Concomitant]
     Active Substance: METHYLPREDNISOLONE
     Indication: EXPOSURE DURING PREGNANCY
     Dosage: 250 MG, UNK
     Route: 064
     Dates: start: 201608
  10. IPILIMUMAB [Concomitant]
     Active Substance: IPILIMUMAB
     Indication: EXPOSURE DURING PREGNANCY
     Dosage: UNK
     Route: 064
     Dates: start: 201605, end: 201608

REACTIONS (3)
  - Foetal exposure during pregnancy [Unknown]
  - Foetal heart rate decreased [Recovered/Resolved]
  - Premature baby [Unknown]
